FAERS Safety Report 4960528-2 (Version None)
Quarter: 2006Q1

REPORT INFORMATION
  Report Type: 
  Country: None (occurrence: None)
  Receive Date: 20060331
  Receipt Date: 20060331
  Transmission Date: 20060701
  Serious: Yes (Other)
  Sender: FDA-Public Use
  Company Number: None

PATIENT
  Sex: Female

DRUGS (10)
  1. LIMBREL    250MG    PRIMUS PHARMACEUTICALS [Suspect]
     Indication: OSTEOARTHRITIS
     Dosage: 250 MG  BID  PO
     Route: 048
     Dates: start: 20050411, end: 20050927
  2. HYDROXYCHLOROQUINE SULFATE [Suspect]
     Indication: SJOGREN'S SYNDROME
     Dosage: 200 MG   HS  PO
     Route: 048
  3. CARAFATE [Concomitant]
  4. LIBRAX [Concomitant]
  5. FLNASE [Concomitant]
  6. LYRICA [Concomitant]
  7. LEXAPRO [Concomitant]
  8. PRENATAL VITAMINS [Concomitant]
  9. FISH OIL [Concomitant]
  10. CYCLOBENZAPRINE HCL [Concomitant]

REACTIONS (1)
  - ABORTION SPONTANEOUS [None]
